FAERS Safety Report 12418584 (Version 1)
Quarter: 2016Q2

REPORT INFORMATION
  Report Type: Spontaneous
  Country: US (occurrence: None)
  Receive Date: 20160527
  Receipt Date: 20160527
  Transmission Date: 20160815
  Serious: No
  Sender: FDA-Public Use
  Company Number: None

PATIENT
  Sex: Female

DRUGS (7)
  1. ALTACE [Concomitant]
     Active Substance: RAMIPRIL
  2. ALEVE [Concomitant]
     Active Substance: NAPROXEN SODIUM
  3. METHOTREXATE [Concomitant]
     Active Substance: METHOTREXATE
  4. SYNTHROID [Concomitant]
     Active Substance: LEVOTHYROXINE SODIUM
  5. ENBREL [Suspect]
     Active Substance: ETANERCEPT
     Indication: RHEUMATOID ARTHRITIS
     Dosage: QWK
     Route: 058
     Dates: start: 20150820
  6. NOVOLOG [Concomitant]
     Active Substance: INSULIN ASPART
  7. LIPITOR [Concomitant]
     Active Substance: ATORVASTATIN CALCIUM

REACTIONS (2)
  - Drug dose omission [None]
  - Infection [None]

NARRATIVE: CASE EVENT DATE: 2016
